FAERS Safety Report 10409677 (Version 2)
Quarter: 2014Q3

REPORT INFORMATION
  Report Type: Spontaneous
  Country: US (occurrence: US)
  Receive Date: 20140826
  Receipt Date: 20140826
  Transmission Date: 20150326
  Serious: Yes (Other)
  Sender: FDA-Public Use
  Company Number: PHHY2014US097576

PATIENT
  Sex: Female

DRUGS (8)
  1. ESTRADIOL. [Suspect]
     Active Substance: ESTRADIOL
     Dosage: UNK UKN, UNK
  2. LIORESAL [Suspect]
     Active Substance: BACLOFEN
     Indication: MUSCLE SPASTICITY
     Dosage: 500.6 UG, DAILY
     Route: 037
     Dates: start: 20060418
  3. RANITIDINE [Suspect]
     Active Substance: RANITIDINE\RANITIDINE HYDROCHLORIDE
     Dosage: UNK UKN, UNK
  4. VALIUM [Suspect]
     Active Substance: DIAZEPAM
     Dosage: UNK (AS NEEDED)
  5. MIRALAX [Suspect]
     Active Substance: POLYETHYLENE GLYCOL 3350
     Dosage: UNK UKN, UNK
  6. BELLADONNA EXTRACT W/PHENOBARBITONE [Suspect]
     Active Substance: BELLADONNA LEAF\PHENOBARBITAL
     Dosage: UNK UKN, UNK
  7. VALPROIC ACID. [Suspect]
     Active Substance: VALPROIC ACID
     Dosage: UNK UKN, UNK
  8. FERROUS SULFATE [Suspect]
     Active Substance: FERROUS SULFATE\FERROUS SULFATE, DRIED
     Dosage: UNK UKN, UNK

REACTIONS (2)
  - Drug withdrawal syndrome [Unknown]
  - Unevaluable event [Recovered/Resolved]
